FAERS Safety Report 18738824 (Version 1)
Quarter: 2021Q1

REPORT INFORMATION
  Report Type: Report from Study
  Country: US (occurrence: US)
  Receive Date: 20210114
  Receipt Date: 20210114
  Transmission Date: 20210419
  Serious: Yes (Hospitalization)
  Sender: FDA-Public Use
  Company Number: US-SA-2021SA005446

PATIENT
  Age: 56 Year
  Sex: Male

DRUGS (3)
  1. CORTICOSTEROID NOS [Concomitant]
     Active Substance: CORTICOSTEROID NOS
     Indication: PREMEDICATION
  2. ALEMTUZUMAB [Suspect]
     Active Substance: ALEMTUZUMAB
     Indication: MULTIPLE SCLEROSIS
     Dosage: 12 MG, QD
     Route: 041
     Dates: start: 20201228, end: 20201230
  3. ALEMTUZUMAB [Suspect]
     Active Substance: ALEMTUZUMAB
     Dosage: 12 MG, QD
     Route: 041
     Dates: start: 20191209, end: 20191213

REACTIONS (11)
  - Pain in extremity [Unknown]
  - Chest discomfort [Unknown]
  - Insomnia [Unknown]
  - Blood glucose increased [Unknown]
  - Eye pain [Unknown]
  - Dyspnoea [Unknown]
  - Anger [Unknown]
  - Feeling hot [Unknown]
  - Anxiety [Unknown]
  - Fatigue [Unknown]
  - Frustration tolerance decreased [Unknown]

NARRATIVE: CASE EVENT DATE: 20201228
